FAERS Safety Report 15751608 (Version 1)
Quarter: 2018Q4

REPORT INFORMATION
  Report Type: Spontaneous
  Country: CZ (occurrence: CZ)
  Receive Date: 20181221
  Receipt Date: 20181221
  Transmission Date: 20190205
  Serious: Yes (Other)
  Sender: FDA-Public Use
  Company Number: CZ-FRESENIUS KABI-FK201812935

PATIENT
  Age: 66 Year
  Sex: Female

DRUGS (5)
  1. CISPLATIN. [Suspect]
     Active Substance: CISPLATIN
     Indication: HEPATIC CANCER
     Route: 065
  2. LEUCOVORIN CALCIUM (MANUFACTURER UNKNOWN) [Suspect]
     Active Substance: LEUCOVORIN CALCIUM
     Indication: HEPATIC CANCER
     Route: 065
  3. OXALIPLATIN (MANUFACTURER UNKNOWN) [Suspect]
     Active Substance: OXALIPLATIN
     Indication: HEPATIC CANCER
     Route: 065
  4. CARBOPLATIN (MANUFACTURER UNKNOWN) [Suspect]
     Active Substance: CARBOPLATIN
     Indication: HEPATIC CANCER
     Route: 065
  5. GEMCITABINE [Suspect]
     Active Substance: GEMCITABINE\GEMCITABINE HYDROCHLORIDE
     Indication: HEPATIC CANCER
     Route: 065

REACTIONS (5)
  - Thrombocytopenia [Unknown]
  - Haematotoxicity [Unknown]
  - Neutropenia [Unknown]
  - Anaemia [Unknown]
  - Paraesthesia [Unknown]
